FAERS Safety Report 20834362 (Version 1)
Quarter: 2022Q2

REPORT INFORMATION
  Report Type: 
  Country: None (occurrence: None)
  Receive Date: 20220516
  Receipt Date: 20220516
  Transmission Date: 20220721
  Serious: No
  Sender: FDA-Public Use
  Company Number: CA-002147023-PHHY2016CA054929

PATIENT

DRUGS (19)
  1. XOLAIR [Suspect]
     Active Substance: OMALIZUMAB
     Dates: start: 20151201
  2. XOLAIR [Suspect]
     Active Substance: OMALIZUMAB
     Dates: start: 20160419
  3. XOLAIR [Suspect]
     Active Substance: OMALIZUMAB
     Dates: start: 20160517
  4. XOLAIR [Suspect]
     Active Substance: OMALIZUMAB
     Dates: start: 20160809
  5. XOLAIR [Suspect]
     Active Substance: OMALIZUMAB
     Dates: start: 20161108
  6. XOLAIR [Suspect]
     Active Substance: OMALIZUMAB
     Dates: start: 20170103
  7. XOLAIR [Suspect]
     Active Substance: OMALIZUMAB
     Dates: start: 20170131
  8. XOLAIR [Suspect]
     Active Substance: OMALIZUMAB
     Dates: start: 20170228
  9. XOLAIR [Suspect]
     Active Substance: OMALIZUMAB
     Dates: start: 20170523
  10. XOLAIR [Suspect]
     Active Substance: OMALIZUMAB
     Dates: start: 20190506
  11. XOLAIR [Suspect]
     Active Substance: OMALIZUMAB
     Dates: start: 20151204
  12. XOLAIR [Suspect]
     Active Substance: OMALIZUMAB
     Dates: start: 20210429
  13. XOLAIR [Suspect]
     Active Substance: OMALIZUMAB
     Dates: start: 20210526
  14. XOLAIR [Suspect]
     Active Substance: OMALIZUMAB
  15. XOLAIR [Suspect]
     Active Substance: OMALIZUMAB
     Dates: start: 20220409
  16. METHOTREXATE [Concomitant]
     Active Substance: METHOTREXATE
  17. CYCLOSPORINE [Concomitant]
     Active Substance: CYCLOSPORINE
  18. CETIRIZINE HYDROCHLORIDE [Concomitant]
     Active Substance: CETIRIZINE HYDROCHLORIDE
  19. PREDNISONE [Concomitant]
     Active Substance: PREDNISONE
     Dosage: HIGH DOSE ONCE/SINGLE DURING THE PAST 12 MONTHS

REACTIONS (17)
  - Anaphylactic reaction [None]
  - Fall [None]
  - Bone contusion [None]
  - Road traffic accident [None]
  - Head injury [None]
  - Vision blurred [None]
  - Eczema [None]
  - Discomfort [None]
  - Temperature intolerance [None]
  - Rhinorrhoea [None]
  - Oropharyngeal pain [None]
  - Pyrexia [None]
  - Nasopharyngitis [None]
  - Hypersensitivity [None]
  - Eye swelling [None]
  - Headache [None]
  - Incorrect dose administered [None]

NARRATIVE: CASE EVENT DATE: 20160301
